FAERS Safety Report 7602973-2 (Version None)
Quarter: 2011Q3

REPORT INFORMATION
  Report Type: 
  Country: None (occurrence: None)
  Receive Date: 20110712
  Receipt Date: 20110502
  Transmission Date: 20111222
  Serious: No
  Sender: FDA-Public Use
  Company Number: A0925335A

PATIENT
  Age: 84 Year
  Sex: Male

DRUGS (5)
  1. JALYN [Suspect]
     Dosage: 1CAP PER DAY
     Route: 048
  2. ATENOLOL [Concomitant]
  3. STATINS [Concomitant]
  4. ASPIRIN [Concomitant]
  5. COUGH MEDICINE [Concomitant]

REACTIONS (3)
  - POLLAKIURIA [None]
  - CONDITION AGGRAVATED [None]
  - DRUG INEFFECTIVE [None]
